FAERS Safety Report 9129892 (Version 1)
Quarter: 2013Q1

REPORT INFORMATION
  Report Type: Report from Study
  Country: TW (occurrence: TW)
  Receive Date: 20130125
  Receipt Date: 20130125
  Transmission Date: 20140127
  Serious: Yes (Hospitalization)
  Sender: FDA-Public Use
  Company Number: TW-BRISTOL-MYERS SQUIBB COMPANY-17293507

PATIENT
  Age: 55 Year
  Sex: Female
  Weight: 49.7 kg

DRUGS (10)
  1. PACLITAXEL [Suspect]
     Indication: OVARIAN CANCER
     Dosage: INFUSION SOLUTION?LAST DOSE:15SEP2011
     Route: 042
     Dates: start: 20110805
  2. CARBOPLATIN [Suspect]
     Indication: OVARIAN CANCER
     Dosage: INFUSION SOLUTION?LAST DOSE:15SEP2011
     Route: 042
     Dates: start: 20110805
  3. BEVACIZUMAB [Suspect]
     Indication: OVARIAN CANCER
     Dosage: VIAL?LAST DOSE:15SEP2011
     Route: 042
     Dates: start: 20110805
  4. FERROUS GLUTAMATE [Concomitant]
     Dates: start: 20110906
  5. LOPERAMIDE [Concomitant]
     Dates: start: 20110906
  6. ZOLPIDEM [Concomitant]
     Dates: start: 20110915
  7. MAGNESIUM [Concomitant]
     Dates: start: 20110915, end: 20110921
  8. PROCHLORPERAZINE [Concomitant]
     Dates: start: 20110915, end: 20110919
  9. THIAMINE HCL [Concomitant]
  10. ASCORBIC ACID [Concomitant]

REACTIONS (1)
  - Ileus [Recovered/Resolved]
